FAERS Safety Report 5819407-0 (Version None)
Quarter: 2008Q3

REPORT INFORMATION
  Report Type: 
  Country: None (occurrence: None)
  Receive Date: 20080718
  Receipt Date: 20080710
  Transmission Date: 20090109
  Serious: Yes (Hospitalization)
  Sender: FDA-Public Use
  Company Number: WAES 0802USA05357

PATIENT
  Age: 48 Year
  Sex: Male

DRUGS (6)
  1. ZOCOR [Suspect]
     Indication: DYSLIPIDAEMIA
     Dosage: 20 MG/DAILY PO
     Route: 048
     Dates: start: 20071221, end: 20080218
  2. ZOCOR [Suspect]
     Indication: HYPERCHOLESTEROLAEMIA
     Dosage: 20 MG/DAILY PO
     Route: 048
     Dates: start: 20071221, end: 20080218
  3. PLACEBO (UNSPECIFIED) [Suspect]
     Indication: DYSLIPIDAEMIA
     Dosage: PO
     Route: 048
     Dates: start: 20071221, end: 20080218
  4. PLACEBO (UNSPECIFIED) [Suspect]
     Indication: HYPERCHOLESTEROLAEMIA
     Dosage: PO
     Route: 048
     Dates: start: 20071221, end: 20080218
  5. PLACEBO (UNSPECIFIED) [Suspect]
     Indication: DYSLIPIDAEMIA
     Dosage: PO
     Route: 048
     Dates: start: 20071221, end: 20080218
  6. PLACEBO (UNSPECIFIED) [Suspect]
     Indication: HYPERCHOLESTEROLAEMIA
     Dosage: PO
     Route: 048
     Dates: start: 20071221, end: 20080218

REACTIONS (4)
  - LUNG INFECTION [None]
  - PHLEBITIS [None]
  - PULMONARY EMBOLISM [None]
  - VENOUS THROMBOSIS [None]
